FAERS Safety Report 5295683-0 (Version None)
Quarter: 2007Q2

REPORT INFORMATION
  Report Type: 
  Country: None (occurrence: None)
  Receive Date: 20070410
  Receipt Date: 20070410
  Transmission Date: 20071010
  Serious: Yes (Death, Hospitalization)
  Sender: FDA-Public Use
  Company Number: None

PATIENT
  Sex: Male
  Weight: 50.4 kg

DRUGS (14)
  1. GLEEVEC [Suspect]
     Indication: ASTROCYTOMA
     Dosage: 500 MG  BID  PO
     Route: 048
     Dates: start: 20060712, end: 20070403
  2. HYDROXYUREA [Suspect]
     Indication: ASTROCYTOMA
     Dosage: 500 MG  BID  PO
     Route: 048
     Dates: start: 20060712, end: 20070403
  3. CYMBALTA [Concomitant]
  4. DECADRON [Concomitant]
  5. PEPCIS [Concomitant]
  6. KEPPRA [Concomitant]
  7. DILANTIN [Concomitant]
  8. TRILEPTAL [Concomitant]
  9. POTASSIUM CHLORIDE [Concomitant]
  10. ATIVAN [Concomitant]
  11. KETOROLAC TROMETHAMINE [Concomitant]
  12. ZOFRAN [Concomitant]
  13. ZANTAC [Concomitant]
  14. ATIVAN [Concomitant]

REACTIONS (7)
  - BRAIN HERNIATION [None]
  - BRAIN OEDEMA [None]
  - CONVULSION [None]
  - HEADACHE [None]
  - LOSS OF CONSCIOUSNESS [None]
  - MALIGNANT NEOPLASM PROGRESSION [None]
  - RESPIRATORY ARREST [None]
